FAERS Safety Report 7873095-0 (Version None)
Quarter: 2011Q4

REPORT INFORMATION
  Report Type: 
  Country: None (occurrence: None)
  Receive Date: 20111030
  Receipt Date: 20110422
  Transmission Date: 20120403
  Serious: No
  Sender: FDA-Public Use
  Company Number: US-AMGEN-USASP2011021211

PATIENT
  Age: 73 Year
  Sex: Female

DRUGS (2)
  1. ENBREL [Suspect]
     Indication: RHEUMATOID ARTHRITIS
     Dosage: 25 MG, 2 TIMES/WK
     Dates: start: 20000101
  2. PLAQUENIL [Concomitant]
     Dosage: UNK
     Dates: start: 20000101

REACTIONS (3)
  - HERPES ZOSTER [None]
  - RALES [None]
  - RHEUMATOID ARTHRITIS [None]
